FAERS Safety Report 8188263-0 (Version None)
Quarter: 2012Q1

REPORT INFORMATION
  Report Type: 
  Country: None (occurrence: None)
  Receive Date: 20120306
  Receipt Date: 20120229
  Transmission Date: 20120608
  Serious: Yes (Hospitalization)
  Sender: FDA-Public Use
  Company Number: DE-ROCHE-1045033

PATIENT
  Sex: Female
  Weight: 66.5 kg

DRUGS (4)
  1. IODE [Concomitant]
     Dates: start: 20060101
  2. JODTHYROX [Concomitant]
     Dates: start: 20060101
  3. IBUPROFEN [Suspect]
     Indication: PRODUCT USED FOR UNKNOWN INDICATION
     Route: 048
     Dates: start: 20120110, end: 20120223
  4. VEMURAFENIB [Suspect]
     Indication: METASTATIC MALIGNANT MELANOMA
     Dosage: LAST DOSE PRIOR TO SAE 23 FEB 2012
     Route: 048
     Dates: start: 20120104, end: 20120223

REACTIONS (1)
  - ANAEMIA [None]
